FAERS Safety Report 12705322 (Version 5)
Quarter: 2021Q4

REPORT INFORMATION
  Report Type: Other
  Country: US (occurrence: None)
  Receive Date: 20160831
  Receipt Date: 20211118
  Transmission Date: 20220303
  Serious: Yes (Other)
  Sender: FDA-Public Use
  Company Number: US-ROCHE-1822438

PATIENT

DRUGS (2)
  1. BEVACIZUMAB [Suspect]
     Active Substance: BEVACIZUMAB
     Indication: Malignant glioma
     Dosage: DAYS 1 + 15 (OVER 28-DAY CYCLES).
     Route: 042
  2. MARIZOMIB [Suspect]
     Active Substance: MARIZOMIB
     Indication: Malignant glioma
     Dosage: DAYS 1, 8, AND 15
     Route: 042

REACTIONS (23)
  - Haemorrhage intracranial [Unknown]
  - Hallucination [Unknown]
  - Fatigue [Unknown]
  - Headache [Unknown]
  - Hypertension [Unknown]
  - Confusional state [Unknown]
  - Ataxia [Unknown]
  - Proteinuria [Unknown]
  - Appendicitis perforated [Unknown]
  - Blindness [Unknown]
  - Lethargy [Unknown]
  - Nausea [Unknown]
  - Vomiting [Unknown]
  - Insomnia [Unknown]
  - Dizziness [Unknown]
  - Muscular weakness [Unknown]
  - Dysarthria [Unknown]
  - Hyperglycaemia [Unknown]
  - Aphasia [Unknown]
  - Seizure [Unknown]
  - Hemiparesis [Unknown]
  - Urinary tract infection [Unknown]
  - Lymphocyte count decreased [Unknown]
